FAERS Safety Report 7088043-3 (Version None)
Quarter: 2010Q4

REPORT INFORMATION
  Report Type: 
  Country: None (occurrence: None)
  Receive Date: 20101108
  Receipt Date: 20101025
  Transmission Date: 20110411
  Serious: Yes (Other)
  Sender: FDA-Public Use
  Company Number: PHHY2010US72086

PATIENT
  Sex: Female

DRUGS (14)
  1. RECLAST [Suspect]
     Indication: OSTEOPOROSIS
     Dosage: UNK
     Dates: start: 20101012
  2. RECLAST [Suspect]
     Indication: OSTEOPENIA
  3. RECLAST [Suspect]
     Indication: ARTHRITIS
  4. BONIVA [Suspect]
     Dosage: 2 TABLETS, ONCE A DAY
  5. FOSAMAX [Suspect]
     Dosage: 2 TABLETS, ONCE A DAY
  6. NEURONTIN [Concomitant]
  7. AMITRIPTYLINE HCL [Concomitant]
     Dosage: 25 MG
  8. ZYRTEC [Concomitant]
  9. ESTROGEN NOS [Concomitant]
  10. FLAXSEED OIL [Concomitant]
  11. CALCIUM [Concomitant]
  12. VITAMIN D2 [Concomitant]
     Dosage: 5000 UNITS
  13. LOVAZA [Concomitant]
  14. MULTI-VITAMINS [Concomitant]
     Dosage: ONCE A DAY

REACTIONS (22)
  - ARTHRALGIA [None]
  - BLOOD GLUCOSE INCREASED [None]
  - BONE DISORDER [None]
  - CHILLS [None]
  - COORDINATION ABNORMAL [None]
  - DECREASED APPETITE [None]
  - DIARRHOEA [None]
  - FATIGUE [None]
  - FEELING COLD [None]
  - GAIT DISTURBANCE [None]
  - HEAD DISCOMFORT [None]
  - HYPERHIDROSIS [None]
  - NAUSEA [None]
  - NEURALGIA [None]
  - NEUROPATHY PERIPHERAL [None]
  - PAIN [None]
  - PARAESTHESIA [None]
  - PERIPHERAL COLDNESS [None]
  - PYREXIA [None]
  - TENDERNESS [None]
  - THIRST [None]
  - TREMOR [None]
